FAERS Safety Report 10401735 (Version 2)
Quarter: 2018Q1

REPORT INFORMATION
  Report Type: Spontaneous
  Country: BR (occurrence: BR)
  Receive Date: 20140822
  Receipt Date: 20180105
  Transmission Date: 20180508
  Serious: Yes (Hospitalization)
  Sender: FDA-Public Use
  Company Number: BR-SA-2014SA110725

PATIENT
  Age: 43 Year
  Sex: Female
  Weight: 62 kg

DRUGS (5)
  1. LANTUS [Suspect]
     Active Substance: INSULIN GLARGINE
     Indication: TYPE 1 DIABETES MELLITUS
     Dosage: LANTUS STRENGTH- 3 ML CARTRIDGE, UNIT OF DOSE OF LANTUS- IU
     Route: 058
  2. LOSARTAN. [Concomitant]
     Active Substance: LOSARTAN
     Indication: HYPERTENSION
     Route: 048
     Dates: start: 2010
  3. LANTUS [Suspect]
     Active Substance: INSULIN GLARGINE
     Indication: TYPE 1 DIABETES MELLITUS
     Dosage: LANTUS STRENGTH- 3 ML CARTRIDGE, UNIT OF DOSE OF LANTUS- IU?DOSE: 50 IN THE MORNING AND 25 AFTERNOON
     Route: 058
  4. VITAMINS NOS [Concomitant]
     Active Substance: VITAMINS
  5. APIDRA [Concomitant]
     Active Substance: INSULIN GLULISINE
     Indication: HYPERGLYCAEMIA
     Dosage: DOSE:1IU EVERY 8G
     Route: 058

REACTIONS (4)
  - Malaise [Unknown]
  - Product use issue [Unknown]
  - Blood glucose decreased [Unknown]
  - Road traffic accident [Unknown]

NARRATIVE: CASE EVENT DATE: 201408
